FAERS Safety Report 8909267 (Version 2)
Quarter: 2013Q1

REPORT INFORMATION
  Report Type: Spontaneous
  Country: US (occurrence: None)
  Receive Date: 20121026
  Receipt Date: 20121119
  Transmission Date: 20140127
  Serious: Yes (Hospitalization)
  Sender: FDA-Public Use
  Company Number: 2012PROUSA02009

PATIENT
  Age: 78 Year
  Sex: Male
  Weight: 77.1 kg

DRUGS (1)
  1. PROVENGE [Suspect]
     Indication: PROSTATE CANCER METASTATIC
     Route: 042
     Dates: start: 20120907, end: 20120907

REACTIONS (14)
  - Acute myocardial infarction [None]
  - Obstructive uropathy [None]
  - Urinary tract infection [None]
  - Iron deficiency anaemia [None]
  - Coronary artery disease [None]
  - Hydronephrosis [None]
  - Renal failure acute [None]
  - Immobile [None]
  - Arthralgia [None]
  - Pain in extremity [None]
  - Arthralgia [None]
  - Arthralgia [None]
  - Prostate cancer [None]
  - Malignant neoplasm progression [None]
